FAERS Safety Report 13301261 (Version 1)
Quarter: 2017Q1

REPORT INFORMATION
  Report Type: Spontaneous
  Country: US (occurrence: US)
  Receive Date: 20170307
  Receipt Date: 20170307
  Transmission Date: 20170428
  Serious: No
  Sender: FDA-Public Use
  Company Number: US-DEPOMED, INC.-US-2016DEP011542

PATIENT

DRUGS (1)
  1. GRALISE [Suspect]
     Active Substance: GABAPENTIN
     Indication: PAIN
     Dosage: 1 DF, WITH EVENING MEAL AS DIRECTED PER PACKAGE DIRECTIONS
     Route: 048
     Dates: start: 20160623

REACTIONS (4)
  - Off label use [Recovered/Resolved]
  - Somnolence [Recovering/Resolving]
  - Amnesia [Recovering/Resolving]
  - Hypersomnia [Recovering/Resolving]

NARRATIVE: CASE EVENT DATE: 20160623
